FAERS Safety Report 15331420 (Version 1)
Quarter: 2018Q3

REPORT INFORMATION
  Report Type: Spontaneous
  Country: HR (occurrence: HR)
  Receive Date: 20180829
  Receipt Date: 20180829
  Transmission Date: 20181010
  Serious: Yes (Other)
  Sender: FDA-Public Use
  Company Number: HR-PFIZER INC-2018345028

PATIENT
  Sex: Female

DRUGS (1)
  1. SULFASALAZINE. [Suspect]
     Active Substance: SULFASALAZINE
     Dosage: 5000 MG, 1X/DAY
     Route: 048
     Dates: start: 201805, end: 201805

REACTIONS (4)
  - Intentional overdose [Unknown]
  - Leukocytosis [Unknown]
  - Suicide attempt [Unknown]
  - Abdominal pain [Unknown]

NARRATIVE: CASE EVENT DATE: 201805
